FAERS Safety Report 7916852 (Version 3)
Quarter: 2012Q4

REPORT INFORMATION
  Report Type: 
  Country: US (occurrence: US)
  Receive Date: 20110427
  Receipt Date: 20121127
  Transmission Date: 20130627
  Serious: Yes (Hospitalization)
  Sender: FDA-Public Use
  Company Number: US-BAYER-2011-032308

PATIENT
  Age: 28 Year
  Sex: Female
  Weight: 104.31 kg

DRUGS (14)
  1. YAZ [Suspect]
     Indication: CONTRACEPTION
     Dosage: UNK, QD
     Route: 048
     Dates: start: 200608, end: 20070202
  2. YAZ [Suspect]
     Indication: ACNE
  3. ADVIL [Concomitant]
     Dosage: UNK UNK, PRN
     Dates: start: 2001
  4. SIMVASTATIN [Concomitant]
     Indication: CHOLESTEROL HIGH
     Dosage: UNK
     Dates: start: 2007
  5. HYDROCODONE W/APAP [Concomitant]
     Dosage: UNK
     Dates: start: 20070123
  6. LOESTRIN [Concomitant]
     Dosage: UNK
  7. ORTHO TRI-CYCLEN LO [Concomitant]
  8. PHENERGAN [Concomitant]
     Dosage: 25 mg, UNK
     Route: 030
  9. ZOFRAN [Concomitant]
     Dosage: 4 mg, UNK
     Route: 030
  10. COMPAZINE [Concomitant]
  11. MIRAPEX [Concomitant]
     Dosage: 0.125 mg, UNK
     Dates: start: 20061212
  12. SOLU-MEDROL [Concomitant]
     Indication: INFLAMMATION
  13. HALDOL [Concomitant]
  14. SALINE [Concomitant]

REACTIONS (6)
  - Transverse sinus thrombosis [None]
  - Intracranial venous sinus thrombosis [None]
  - Headache [None]
  - Amnesia [None]
  - Aphasia [None]
  - Emotional distress [None]
